FAERS Safety Report 23251390 (Version 1)
Quarter: 2023Q4

REPORT INFORMATION
  Report Type: Spontaneous
  Country: US (occurrence: US)
  Receive Date: 20231201
  Receipt Date: 20231201
  Transmission Date: 20240109
  Serious: No
  Sender: FDA-Public Use
  Company Number: US-JNJFOC-20231138043

PATIENT
  Sex: Female

DRUGS (1)
  1. REMICADE [Suspect]
     Active Substance: INFLIXIMAB
     Indication: Product used for unknown indication
     Route: 041
     Dates: start: 202311

REACTIONS (8)
  - Nausea [Unknown]
  - Muscle tightness [Unknown]
  - Fatigue [Unknown]
  - Feeling cold [Unknown]
  - Movement disorder [Unknown]
  - Dizziness [Unknown]
  - Eating disorder [Unknown]
  - Decreased appetite [Unknown]

NARRATIVE: CASE EVENT DATE: 20231101
